FAERS Safety Report 6398849-1 (Version None)
Quarter: 2009Q4

REPORT INFORMATION
  Report Type: 
  Country: None (occurrence: None)
  Receive Date: 20091013
  Receipt Date: 20091005
  Transmission Date: 20100525
  Serious: Yes (Hospitalization, Other)
  Sender: FDA-Public Use
  Company Number: FR-ABBOTT-09P-056-0597711-00

PATIENT
  Sex: Male
  Weight: 74 kg

DRUGS (3)
  1. HUMIRA [Suspect]
     Indication: PSORIASIS
     Route: 058
     Dates: start: 20081201, end: 20090911
  2. SORIATANE [Concomitant]
     Indication: PSORIASIS
     Route: 048
  3. ZYPREXA [Concomitant]
     Indication: PSYCHOTIC DISORDER
     Route: 048

REACTIONS (5)
  - ABDOMINAL PAIN [None]
  - C-REACTIVE PROTEIN INCREASED [None]
  - DERMO-HYPODERMITIS [None]
  - ERYSIPELAS [None]
  - LEUKOCYTOSIS [None]
